FAERS Safety Report 4390803-4 (Version None)
Quarter: 2004Q3

REPORT INFORMATION
  Report Type: 
  Country: None (occurrence: None)
  Receive Date: 20040706
  Receipt Date: 20040706
  Transmission Date: 20050211
  Serious: Yes (Other)
  Sender: FDA-Public Use
  Company Number: None

PATIENT
  Age: 12 Year
  Sex: Male
  Weight: 57.15 kg

DRUGS (2)
  1. DEFEROXAMINE MESYLATE [Suspect]
     Indication: BLOOD IRON INCREASED
     Dosage: 2 G /VIAL FOR INJECTION
  2. DEFEROXAMINE MESYLATE [Suspect]
     Indication: THALASSAEMIA
     Dosage: 2 G /VIAL FOR INJECTION

REACTIONS (2)
  - CONTUSION [None]
  - INJECTION SITE PAIN [None]
